FAERS Safety Report 6675780-5 (Version None)
Quarter: 2010Q2

REPORT INFORMATION
  Report Type: 
  Country: None (occurrence: None)
  Receive Date: 20100411
  Receipt Date: 20100330
  Transmission Date: 20101027
  Serious: Yes (Other)
  Sender: FDA-Public Use
  Company Number: FI-BRISTOL-MYERS SQUIBB COMPANY-15051790

PATIENT
  Sex: Female

DRUGS (1)
  1. ABILIFY [Suspect]
     Dosage: INITIAL DOSE-2.5 MG/D (01MAR2010);INCREASED 5 MG DAILY; THE DOSE WAS DECREASED BACK
     Dates: start: 20100301

REACTIONS (4)
  - ANXIETY [None]
  - FACE OEDEMA [None]
  - FACIAL PARESIS [None]
  - NAUSEA [None]
